FAERS Safety Report 9809010 (Version 1)
Quarter: 2014Q1

REPORT INFORMATION
  Report Type: Spontaneous
  Country: MX (occurrence: MX)
  Receive Date: 20140110
  Receipt Date: 20140110
  Transmission Date: 20141002
  Serious: Yes (Other)
  Sender: FDA-Public Use
  Company Number: MX-GLAXOSMITHKLINE-A1056240A

PATIENT
  Sex: Male
  Weight: 60 kg

DRUGS (2)
  1. COMBODART [Suspect]
     Indication: PROSTATIC DISORDER
     Dosage: 1CAP PER DAY
     Route: 065
  2. VITAMINS [Suspect]
     Indication: PRODUCT USED FOR UNKNOWN INDICATION
     Route: 065

REACTIONS (5)
  - Poisoning [Unknown]
  - Pruritus [Unknown]
  - Pruritus [Unknown]
  - Skin fissures [Unknown]
  - Skin discolouration [Unknown]
